FAERS Safety Report 9975959 (Version 1)
Quarter: 2014Q1

REPORT INFORMATION
  Report Type: Report from Study
  Country: US (occurrence: US)
  Receive Date: 20140306
  Receipt Date: 20140306
  Transmission Date: 20141002
  Serious: Yes (Hospitalization)
  Sender: FDA-Public Use
  Company Number: US-ABBVIE-14P-163-1206729-00

PATIENT
  Age: 52 Year
  Sex: Female
  Weight: 84.44 kg

DRUGS (8)
  1. HUMIRA [Suspect]
     Indication: RHEUMATOID ARTHRITIS
     Dates: start: 20140213
  2. METHOTREXATE [Concomitant]
     Indication: RHEUMATOID ARTHRITIS
  3. PREDNISONE [Concomitant]
     Indication: RHEUMATOID ARTHRITIS
  4. VYTORIN [Concomitant]
     Indication: BLOOD CHOLESTEROL
  5. FOLIC ACID [Concomitant]
     Indication: VITAMIN SUPPLEMENTATION
  6. LISINOPRIL [Concomitant]
     Indication: BLOOD PRESSURE
  7. VIBRYD [Concomitant]
     Indication: DEPRESSION
  8. VIBRYD [Concomitant]
     Indication: PRODUCT USED FOR UNKNOWN INDICATION

REACTIONS (3)
  - Skin induration [Not Recovered/Not Resolved]
  - Abscess limb [Not Recovered/Not Resolved]
  - Joint swelling [Recovering/Resolving]
